FAERS Safety Report 8369117-3 (Version None)
Quarter: 2012Q2

REPORT INFORMATION
  Report Type: 
  Country: None (occurrence: None)
  Receive Date: 20120518
  Receipt Date: 20120507
  Transmission Date: 20120825
  Serious: Yes (Hospitalization)
  Sender: FDA-Public Use
  Company Number: US-JNJFOC-20111202966

PATIENT
  Sex: Male
  Weight: 122.47 kg

DRUGS (13)
  1. REMICADE [Suspect]
     Route: 042
     Dates: start: 20110207
  2. REMICADE [Suspect]
     Route: 042
     Dates: start: 20101108
  3. PREDNISONE [Concomitant]
     Indication: PAIN
     Dosage: INTERMITTENT USE VARYING DOSES
     Route: 065
     Dates: start: 20090101, end: 20110101
  4. REMICADE [Suspect]
     Route: 042
     Dates: start: 20101220
  5. REMICADE [Suspect]
     Route: 042
     Dates: start: 20101007
  6. REMICADE [Suspect]
     Route: 042
     Dates: start: 20110404
  7. VITAMIN D [Concomitant]
     Indication: VITAMIN D DEFICIENCY
     Route: 065
     Dates: start: 20100101, end: 20110101
  8. GABAPENTIN [Concomitant]
     Indication: PAIN
     Dosage: QHS
     Route: 065
     Dates: start: 20090801, end: 20110101
  9. COGENTIN [Concomitant]
     Indication: PAIN
     Route: 065
  10. PLAQUENIL [Concomitant]
     Indication: ARTHRITIS
     Route: 065
     Dates: start: 20090406, end: 20111101
  11. REMICADE [Suspect]
     Indication: ANKYLOSING SPONDYLITIS
     Route: 042
     Dates: start: 20110702
  12. REMICADE [Suspect]
     Route: 042
     Dates: start: 20100924
  13. PREDNISONE [Concomitant]
     Indication: INFLAMMATION
     Dosage: INTERMITTENT USE VARYING DOSES
     Route: 065
     Dates: start: 20090101, end: 20110101

REACTIONS (1)
  - BLISTER [None]
